FAERS Safety Report 20447808 (Version 2)
Quarter: 2022Q1

REPORT INFORMATION
  Report Type: Spontaneous
  Country: GB (occurrence: GB)
  Receive Date: 20220209
  Receipt Date: 20220321
  Transmission Date: 20220423
  Serious: Yes (Death, Hospitalization, Other)
  Sender: FDA-Public Use
  Company Number: GB-AMGEN-GBRSP2022018393

PATIENT

DRUGS (11)
  1. PANITUMUMAB [Suspect]
     Active Substance: PANITUMUMAB
     Indication: Colon cancer
     Dosage: UNK
     Route: 065
  2. BEVACIZUMAB [Suspect]
     Active Substance: BEVACIZUMAB
     Indication: Product used for unknown indication
     Dosage: UNK
     Route: 065
  3. CAPECITABINE [Suspect]
     Active Substance: CAPECITABINE
     Indication: Product used for unknown indication
     Dosage: UNK
     Route: 065
  4. BEVACIZUMAB [Suspect]
     Active Substance: BEVACIZUMAB
     Indication: Product used for unknown indication
     Dosage: UNK
     Route: 065
  5. LEUCOVORIN [Suspect]
     Active Substance: LEUCOVORIN
     Indication: Colon cancer
     Dosage: UNK
     Route: 065
  6. FLUOROURACIL [Suspect]
     Active Substance: FLUOROURACIL
     Indication: Colon cancer
     Dosage: UNK
     Route: 065
  7. OXALIPLATIN [Suspect]
     Active Substance: OXALIPLATIN
     Indication: Colon cancer
     Dosage: UNK
     Route: 065
  8. IRINOTECAN [Suspect]
     Active Substance: IRINOTECAN
     Indication: Colon cancer
     Dosage: UNK
     Route: 065
  9. CETUXIMAB [Suspect]
     Active Substance: CETUXIMAB
     Indication: Colon cancer
     Route: 065
  10. CAPECITABINE [Suspect]
     Active Substance: CAPECITABINE
  11. OXALIPLATIN [Suspect]
     Active Substance: OXALIPLATIN

REACTIONS (62)
  - Death [Fatal]
  - Gastrointestinal disorder [Unknown]
  - Diarrhoea [Unknown]
  - Nausea [Unknown]
  - Vomiting [Unknown]
  - Constipation [Unknown]
  - Stomatitis [Unknown]
  - Gastric ulcer perforation [Unknown]
  - Hepatic failure [Unknown]
  - Gastrointestinal fistula [Unknown]
  - Infection [Unknown]
  - Neutropenia [Unknown]
  - Cardiovascular disorder [Unknown]
  - Pulmonary embolism [Unknown]
  - Arrhythmia [Unknown]
  - Hypotension [Unknown]
  - Hypertension [Unknown]
  - Thrombophlebitis [Unknown]
  - Embolism venous [Unknown]
  - Cardiac failure [Unknown]
  - Cerebrovascular accident [Unknown]
  - Angina pectoris [Unknown]
  - Acute myocardial infarction [Unknown]
  - Pericardial disease [Unknown]
  - Metabolic disorder [Unknown]
  - Endocrine disorder [Unknown]
  - Electrolyte imbalance [Unknown]
  - Blood glucose abnormal [Unknown]
  - Cachexia [Unknown]
  - Hypovolaemia [Unknown]
  - Oedema peripheral [Unknown]
  - Fatigue [Unknown]
  - Decreased appetite [Unknown]
  - Hypervolaemia [Unknown]
  - Renal disorder [Unknown]
  - Acute kidney injury [Unknown]
  - Renal tubular disorder [Unknown]
  - Stoma complication [Unknown]
  - Blood disorder [Unknown]
  - Anaemia [Unknown]
  - Thrombocytopenia [Unknown]
  - Disseminated intravascular coagulation [Unknown]
  - Pain [Unknown]
  - Respiratory disorder [Unknown]
  - Dyspnoea [Unknown]
  - Cough [Unknown]
  - Acute respiratory distress syndrome [Unknown]
  - Nervous system disorder [Unknown]
  - Dizziness [Unknown]
  - Syncope [Unknown]
  - Neuropathy peripheral [Unknown]
  - Headache [Unknown]
  - Seizure [Unknown]
  - Mental disorder [Unknown]
  - Haemorrhage [Unknown]
  - Skin reaction [Unknown]
  - Gout [Unknown]
  - Eye disorder [Unknown]
  - Complication associated with device [Unknown]
  - Skin disorder [Unknown]
  - Embolism arterial [Unknown]
  - Adverse drug reaction [Unknown]
